FAERS Safety Report 8853856 (Version 2)
Quarter: 2013Q2

REPORT INFORMATION
  Report Type: Spontaneous
  Country: US (occurrence: None)
  Receive Date: 20120426
  Receipt Date: 20130107
  Transmission Date: 20140414
  Serious: No
  Sender: FDA-Public Use
  Company Number: PHEH2011US012693

PATIENT
  Age: 41 Year
  Sex: Female
  Weight: 83 kg

DRUGS (7)
  1. GILENYA [Suspect]
     Indication: MULTIPLE SCLEROSIS
     Route: 048
     Dates: start: 20111129
  2. ADDERALL (AMFETAMINE ASPARTATE, AMFETAMINE SULFATE, DEXAMFETAMINE SACCHARATE, DEXAMFETAMINE SULFATE) [Concomitant]
  3. CLONAZEPAM (CLONAZEPAM) [Concomitant]
  4. BACLOFEN (BACLOFEN) [Concomitant]
  5. LEXAPRO (ESCITALOPRAM OXALATE) [Concomitant]
  6. GABAPENTIN (GABAPENTIN) [Concomitant]
  7. OMEPRAZOLE (OMEPRAZOLE) [Concomitant]

REACTIONS (7)
  - Oedema peripheral [None]
  - Myalgia [None]
  - Pain [None]
  - Vision blurred [None]
  - Back pain [None]
  - Blood pressure increased [None]
  - Multiple sclerosis relapse [None]
